FAERS Safety Report 20790098 (Version 1)
Quarter: 2022Q2

REPORT INFORMATION
  Report Type: Spontaneous
  Country: US (occurrence: US)
  Receive Date: 20220505
  Receipt Date: 20220505
  Transmission Date: 20220720
  Serious: No
  Sender: FDA-Public Use
  Company Number: US-PFIZER INC-2021475963

PATIENT
  Age: 70 Year
  Sex: Male

DRUGS (4)
  1. XELJANZ XR [Suspect]
     Active Substance: TOFACITINIB CITRATE
     Indication: Polymyalgia rheumatica
     Dosage: 11 MG, DAILY
     Route: 048
     Dates: start: 20210424
  2. XELJANZ XR [Suspect]
     Active Substance: TOFACITINIB CITRATE
     Indication: Rheumatoid arthritis
  3. PREDNISONE [Concomitant]
     Active Substance: PREDNISONE
     Dosage: UNK
  4. PREDNISONE [Concomitant]
     Active Substance: PREDNISONE
     Dosage: UNK (DOSE TAPERING)

REACTIONS (2)
  - Arthralgia [Recovered/Resolved]
  - Pain [Recovered/Resolved]
